FAERS Safety Report 21924138 (Version 3)
Quarter: 2023Q1

REPORT INFORMATION
  Report Type: Report from Study
  Country: US (occurrence: US)
  Receive Date: 20230130
  Receipt Date: 20230206
  Transmission Date: 20230418
  Serious: No
  Sender: FDA-Public Use
  Company Number: US-002147023-NVSC2023US019539

PATIENT
  Sex: Female

DRUGS (3)
  1. CLOBETASOL [Suspect]
     Active Substance: CLOBETASOL
     Indication: Psoriasis
     Dosage: 0.05 %, TID
     Route: 061
  2. COSENTYX [Suspect]
     Active Substance: SECUKINUMAB
     Indication: Psoriasis
     Dosage: 300 MG, QMO, (FREQUENCY OTHER, (EVERY 4 WEEKS))
     Route: 058
  3. BETAMETHASONE [Suspect]
     Active Substance: BETAMETHASONE
     Indication: Psoriasis
     Dosage: UNK
     Route: 065

REACTIONS (7)
  - Seborrhoeic keratosis [Unknown]
  - Pain of skin [Unknown]
  - Pruritus [Unknown]
  - Paraesthesia [Unknown]
  - Dermatitis [Unknown]
  - Guttate psoriasis [Unknown]
  - Drug ineffective [Unknown]
